FAERS Safety Report 4872249-5 (Version None)
Quarter: 2005Q4

REPORT INFORMATION
  Report Type: 
  Country: None (occurrence: None)
  Receive Date: 20051201
  Receipt Date: 20050728
  Transmission Date: 20060501
  Serious: No
  Sender: FDA-Public Use
  Company Number: 2005PV000774

PATIENT
  Age: 78 Year
  Sex: Female
  Weight: 88.4514 kg

DRUGS (14)
  1. BYETTA [Suspect]
     Indication: DIABETES MELLITUS NON-INSULIN-DEPENDENT
     Dosage: 5 MCG;BID;SC
     Route: 058
     Dates: start: 20050727
  2. ASPIRIN [Concomitant]
  3. AVANDIA [Concomitant]
  4. STARLIX [Concomitant]
  5. WELCHOL [Concomitant]
  6. ALLEGRA [Concomitant]
  7. CALCIUM/VITAMIN D NOS [Concomitant]
  8. CHROMIUM PICOLINATE [Concomitant]
  9. EVISTA [Concomitant]
  10. NASONEX [Concomitant]
  11. POTASSIUM [Concomitant]
  12. PRAVACHOL [Concomitant]
  13. CENTURYVITE [Concomitant]
  14. ASCORBIC ACID [Concomitant]

REACTIONS (6)
  - HEADACHE [None]
  - INJECTION SITE BRUISING [None]
  - INJECTION SITE HAEMORRHAGE [None]
  - INJECTION SITE PAIN [None]
  - NAUSEA [None]
  - WEIGHT DECREASED [None]
